FAERS Safety Report 24126096 (Version 1)
Quarter: 2024Q3

REPORT INFORMATION
  Report Type: Spontaneous
  Country: US (occurrence: None)
  Receive Date: 20240722
  Receipt Date: 20240722
  Transmission Date: 20241016
  Serious: No
  Sender: Public
  Company Number: None

PATIENT
  Age: 78 Year
  Sex: Female
  Weight: 90 kg

DRUGS (1)
  1. LEQEMBI [Suspect]
     Active Substance: LECANEMAB-IRMB
     Indication: Dementia Alzheimer^s type
     Dosage: OTHER FREQUENCY : OTHER;?
     Route: 042
     Dates: start: 20240603, end: 20240616

REACTIONS (1)
  - Amyloid related imaging abnormalities [None]

NARRATIVE: CASE EVENT DATE: 20240716
